FAERS Safety Report 4313040-8 (Version None)
Quarter: 2004Q1

REPORT INFORMATION
  Report Type: 
  Country: None (occurrence: None)
  Receive Date: 20040304
  Receipt Date: 20040217
  Transmission Date: 20041129
  Serious: Yes (Hospitalization)
  Sender: FDA-Public Use
  Company Number: MPSI-10149

PATIENT
  Age: 28 Month
  Sex: Male
  Weight: 14 kg

DRUGS (1)
  1. ALDURAZYME [Suspect]
     Indication: MUCOPOLYSACCHARIDOSIS I
     Dosage: 0.58 MG/KG QWK IV
     Route: 042
     Dates: start: 20030701

REACTIONS (3)
  - BONE MARROW TRANSPLANT [None]
  - BRONCHOSPASM [None]
  - RESPIRATORY FAILURE [None]
